FAERS Safety Report 18784595 (Version 2)
Quarter: 2021Q1

REPORT INFORMATION
  Report Type: Spontaneous
  Country: DE (occurrence: DE)
  Receive Date: 20210125
  Receipt Date: 20210129
  Transmission Date: 20210419
  Serious: Yes (Other)
  Sender: FDA-Public Use
  Company Number: DE-PFIZER INC-2021030731

PATIENT
  Age: 11 Year

DRUGS (3)
  1. SULFASALAZINE. [Suspect]
     Active Substance: SULFASALAZINE
     Indication: CROHN^S DISEASE
     Dosage: 1500 MG, DAILY, FOR A FURTHER THREE MONTHS
     Route: 048
  2. MESALAZIN [Interacting]
     Active Substance: MESALAMINE
     Indication: CROHN^S DISEASE
     Dosage: 1500 MG, DAILY , FOR 7 MONTHS
     Route: 048
  3. MESALAZIN [Interacting]
     Active Substance: MESALAMINE
     Dosage: 1 G, DAILY, FOR A FURTHER THREE MONTHS
     Route: 054

REACTIONS (4)
  - Tubulointerstitial nephritis [Recovering/Resolving]
  - Drug interaction [Recovering/Resolving]
  - Acute kidney injury [Recovering/Resolving]
  - Hypersensitivity [Recovering/Resolving]
